FAERS Safety Report 7425971 (Version 4)
Quarter: 2014Q1

REPORT INFORMATION
  Report Type: Spontaneous
  Country: US (occurrence: US)
  Receive Date: 20100621
  Receipt Date: 20140206
  Transmission Date: 20141002
  Serious: Yes (Other)
  Sender: FDA-Public Use
  Company Number: US-JNJFOC-20100605007

PATIENT
  Age: 41 Year
  Sex: Female
  Weight: 83.92 kg

DRUGS (7)
  1. DURAGESIC [Suspect]
     Indication: NERVE INJURY
     Route: 062
     Dates: start: 201001
  2. HCTZ [Concomitant]
     Indication: BLOOD PRESSURE
     Route: 065
  3. ZANTAC [Concomitant]
     Indication: GASTROOESOPHAGEAL REFLUX DISEASE
     Route: 048
  4. SYNTHROID [Concomitant]
     Indication: HYPOTHYROIDISM
     Route: 048
  5. NEXIUM [Concomitant]
     Indication: GASTROOESOPHAGEAL REFLUX DISEASE
     Route: 048
  6. ATROVENT [Concomitant]
     Indication: ASTHMA
     Route: 065
  7. SYMBICORT [Concomitant]
     Indication: ASTHMA
     Route: 065

REACTIONS (6)
  - Mobility decreased [Not Recovered/Not Resolved]
  - Local swelling [Not Recovered/Not Resolved]
  - Pain [Not Recovered/Not Resolved]
  - Drug effect decreased [Not Recovered/Not Resolved]
  - Product quality issue [Unknown]
  - Product quality issue [Unknown]
